FAERS Safety Report 5509998-1 (Version None)
Quarter: 2007Q4

REPORT INFORMATION
  Report Type: 
  Country: None (occurrence: None)
  Receive Date: 20071107
  Receipt Date: 20071107
  Transmission Date: 20080405
  Serious: Yes (Life-Threatening)
  Sender: FDA-Public Use
  Company Number: None

PATIENT
  Sex: Male
  Weight: 44 kg

DRUGS (3)
  1. CLOFARABINE [Suspect]
     Indication: MYELOID LEUKAEMIA
     Dosage: 60 DAILY IV
     Route: 042
     Dates: start: 20071025, end: 20071029
  2. MELPHALAN [Suspect]
     Dosage: 180 TIMES ONE IV
     Route: 042
     Dates: start: 20071030, end: 20071030
  3. CAMPATH [Concomitant]

REACTIONS (10)
  - ACIDOSIS [None]
  - DYSPNOEA [None]
  - FLUID OVERLOAD [None]
  - HAEMOGLOBIN DECREASED [None]
  - MALNUTRITION [None]
  - OXYGEN SATURATION DECREASED [None]
  - PSEUDOMONAL BACTERAEMIA [None]
  - PULMONARY HAEMORRHAGE [None]
  - RENAL IMPAIRMENT [None]
  - RESPIRATORY RATE INCREASED [None]
